FAERS Safety Report 5292325-5 (Version None)
Quarter: 2007Q2

REPORT INFORMATION
  Report Type: 
  Country: None (occurrence: None)
  Receive Date: 20070410
  Receipt Date: 20070330
  Transmission Date: 20071010
  Serious: Yes (Other)
  Sender: FDA-Public Use
  Company Number: GBWYE881705MAR07

PATIENT
  Sex: Female
  Weight: 36 kg

DRUGS (2)
  1. ETANERCEPT [Suspect]
     Indication: DRUG USE FOR UNKNOWN INDICATION
     Route: 058
     Dates: start: 20070130, end: 20070223
  2. METHOTREXATE [Concomitant]
     Indication: PSORIATIC ARTHROPATHY
     Route: 058
     Dates: start: 20060601

REACTIONS (2)
  - THROMBOCYTOPENIA [None]
  - VIRAL INFECTION [None]
